FAERS Safety Report 22146926 (Version 1)
Quarter: 2023Q1

REPORT INFORMATION
  Report Type: Report from Study
  Country: US (occurrence: US)
  Receive Date: 20230328
  Receipt Date: 20230328
  Transmission Date: 20230418
  Serious: Yes (Other)
  Sender: FDA-Public Use
  Company Number: US-002147023-NVSC2023US065415

PATIENT
  Sex: Female
  Weight: 116.57 kg

DRUGS (6)
  1. COSENTYX [Suspect]
     Active Substance: SECUKINUMAB
     Indication: Psoriasis
     Dosage: 300 MG
     Route: 065
  2. LEVOTHYROXINE [Concomitant]
     Active Substance: LEVOTHYROXINE
     Indication: Psoriasis
     Dosage: 100 UG
     Route: 048
  3. LOSARTAN [Concomitant]
     Active Substance: LOSARTAN
     Indication: Psoriasis
     Dosage: 25 MG, QD
     Route: 048
  4. MAGNESIUM [Concomitant]
     Active Substance: MAGNESIUM
     Indication: Psoriasis
     Dosage: 200 MG, QD
     Route: 048
  5. MOMETASONE FUROATE [Concomitant]
     Active Substance: MOMETASONE FUROATE
     Indication: Psoriasis
     Dosage: 0.1 %
     Route: 061
  6. PANTOPRAZOLE [Concomitant]
     Active Substance: PANTOPRAZOLE
     Indication: Psoriasis
     Dosage: UNK
     Route: 065

REACTIONS (15)
  - Loss of consciousness [Unknown]
  - Arthralgia [Unknown]
  - Eczema [Unknown]
  - Burning sensation [Unknown]
  - Upper limb fracture [Unknown]
  - Back pain [Unknown]
  - Musculoskeletal stiffness [Unknown]
  - Plantar fasciitis [Unknown]
  - Ligament sprain [Unknown]
  - Pain in extremity [Unknown]
  - Hypokinesia [Unknown]
  - Peripheral swelling [Unknown]
  - Muscle spasms [Unknown]
  - Joint stiffness [Unknown]
  - Drug ineffective [Unknown]
